FAERS Safety Report 9525026 (Version 1)
Quarter: 2013Q1

REPORT INFORMATION
  Report Type: Spontaneous
  Country: US (occurrence: None)
  Receive Date: 20130314
  Receipt Date: 20130314
  Transmission Date: 20140127
  Serious: No
  Sender: FDA-Public Use
  Company Number: 1212USA005953

PATIENT
  Age: 54 Year
  Sex: Female

DRUGS (3)
  1. VICTRELIS (BOCEPREVIR) CAPSULE [Suspect]
     Indication: HEPATITIS C
     Dosage: ORAL
     Route: 048
  2. PEGASYS (PEGINTERFERON ALFA-2A) [Suspect]
  3. RIBAVIRIN (RIBAVIRIN) TABLET, 200 MG [Suspect]

REACTIONS (1)
  - Abdominal pain upper [None]
